FAERS Safety Report 13548938 (Version 1)
Quarter: 2017Q2

REPORT INFORMATION
  Report Type: Spontaneous
  Country: US (occurrence: US)
  Receive Date: 20170516
  Receipt Date: 20170516
  Transmission Date: 20170830
  Serious: No
  Sender: FDA-Public Use
  Company Number: US-PFIZER INC-2017206533

PATIENT
  Sex: Female

DRUGS (1)
  1. XELJANZ XR [Suspect]
     Active Substance: TOFACITINIB CITRATE
     Dosage: 11 MG, UNK

REACTIONS (23)
  - Cough [Unknown]
  - Hypoaesthesia [Unknown]
  - Fall [Unknown]
  - Muscular weakness [Unknown]
  - Balance disorder [Unknown]
  - Arthralgia [Unknown]
  - Lymphadenopathy [Unknown]
  - Joint crepitation [Unknown]
  - Fatigue [Unknown]
  - Dyspnoea [Unknown]
  - Paraesthesia [Unknown]
  - Disease progression [Unknown]
  - Memory impairment [Unknown]
  - Joint swelling [Unknown]
  - Myalgia [Unknown]
  - Back pain [Unknown]
  - Pain in extremity [Unknown]
  - Abdominal pain [Unknown]
  - Fibromyalgia [Unknown]
  - Dry eye [Unknown]
  - Lymph node pain [Unknown]
  - Impaired work ability [Unknown]
  - Tenderness [Unknown]
